FAERS Safety Report 6782306-4 (Version None)
Quarter: 2010Q2

REPORT INFORMATION
  Report Type: 
  Country: None (occurrence: None)
  Receive Date: 20100616
  Receipt Date: 20100607
  Transmission Date: 20101027
  Serious: Yes (Other)
  Sender: FDA-Public Use
  Company Number: US-1182098

PATIENT
  Sex: Male
  Weight: 83.9154 kg

DRUGS (2)
  1. DIFLUPREDNATE 0.05% OPHTHALMIC EMULSION [Suspect]
     Indication: CATARACT OPERATION
     Dosage: 1 GTT TID OR QID OS OPHTHALMIC
     Route: 047
     Dates: start: 20100508
  2. NEVANAC [Concomitant]

REACTIONS (1)
  - IRIS HYPERPIGMENTATION [None]
